FAERS Safety Report 5356463-0 (Version None)
Quarter: 2007Q3

REPORT INFORMATION
  Report Type: 
  Country: None (occurrence: None)
  Receive Date: 20070530
  Receipt Date: 20061206
  Transmission Date: 20080115
  Serious: Yes (Hospitalization)
  Sender: FDA-Public Use
  Company Number: US200609006807

PATIENT
  Age: 50 Year
  Sex: Male
  Weight: 90.7 kg

DRUGS (1)
  1. ZYPREXA [Suspect]
     Indication: DEPRESSION
     Dosage: 10 MG
     Dates: start: 20040901

REACTIONS (4)
  - CONVULSION [None]
  - DIABETES MELLITUS [None]
  - METABOLIC DISORDER [None]
  - VISION BLURRED [None]
